FAERS Safety Report 10052519 (Version 1)
Quarter: 2014Q2

REPORT INFORMATION
  Report Type: Spontaneous
  Country: US (occurrence: None)
  Receive Date: 20140401
  Receipt Date: 20140401
  Transmission Date: 20141212
  Serious: Yes (Other)
  Sender: FDA-Public Use
  Company Number: None

PATIENT
  Age: 74 Year
  Sex: Female
  Weight: 96.16 kg

DRUGS (4)
  1. VALSARTAN AND HYDROCHLOROTHIAZIDE [Suspect]
     Indication: HYPERTENSION
     Route: 048
     Dates: start: 20130708
  2. NEXIUM [Concomitant]
  3. CELEBREX [Concomitant]
  4. ONE A DAY MULTIVITAMIN [Concomitant]

REACTIONS (7)
  - Dry mouth [None]
  - Dry throat [None]
  - Gingival atrophy [None]
  - Toothache [None]
  - Ear pain [None]
  - Urticaria [None]
  - Chapped lips [None]
